FAERS Safety Report 21017240 (Version 4)
Quarter: 2022Q3

REPORT INFORMATION
  Report Type: Spontaneous
  Country: JP (occurrence: JP)
  Receive Date: 20220628
  Receipt Date: 20220725
  Transmission Date: 20221027
  Serious: Yes (Hospitalization, Other)
  Sender: FDA-Public Use
  Company Number: JP-MSD-2206JPN002584J

PATIENT
  Age: 35 Year
  Sex: Female
  Weight: 49 kg

DRUGS (3)
  1. LAGEVRIO [Suspect]
     Active Substance: MOLNUPIRAVIR
     Indication: COVID-19 treatment
     Dosage: 800 MILLIGRAM, BID
     Route: 048
     Dates: start: 20220614, end: 20220616
  2. ZINC [Concomitant]
     Active Substance: ZINC
     Indication: Zinc deficiency
     Dosage: 50 MILLIGRAM, BID
     Route: 048
  3. MONTELUKAST SODIUM [Concomitant]
     Active Substance: MONTELUKAST SODIUM
     Indication: Asthma
     Dosage: 10 MILLIGRAM, QD
     Route: 048

REACTIONS (5)
  - Tachycardia [Recovered/Resolved]
  - Arrhythmia [Unknown]
  - Urticaria [Recovered/Resolved]
  - Dizziness [Recovered/Resolved]
  - Nausea [Recovering/Resolving]

NARRATIVE: CASE EVENT DATE: 20220616
